FAERS Safety Report 11221032 (Version 1)
Quarter: 2015Q2

REPORT INFORMATION
  Report Type: Spontaneous
  Country: US (occurrence: None)
  Receive Date: 20150625
  Receipt Date: 20150625
  Transmission Date: 20150821
  Serious: Yes (Life-Threatening, Hospitalization, Disabling)
  Sender: FDA-Public Use
  Company Number: None

PATIENT
  Age: 48 Year
  Sex: Female
  Weight: 160 kg

DRUGS (10)
  1. PRILOSEC [Concomitant]
     Active Substance: OMEPRAZOLE MAGNESIUM
  2. ZYRTEC [Concomitant]
     Active Substance: CETIRIZINE HYDROCHLORIDE
  3. ADVAIR HFA [Concomitant]
     Active Substance: FLUTICASONE PROPIONATE\SALMETEROL XINAFOATE
  4. HARVONI [Concomitant]
     Active Substance: LEDIPASVIR\SOFOSBUVIR
  5. FASLODEX [Suspect]
     Active Substance: FULVESTRANT
     Indication: PROPHYLAXIS
     Dosage: EVERY 28 DAYS 1X A MONTH INJECTION IN BOTH HIPS
     Dates: start: 20121003, end: 20130407
  6. DELODID [Concomitant]
  7. XANEX [Concomitant]
  8. FASLODEX [Suspect]
     Active Substance: FULVESTRANT
     Indication: BREAST CANCER
     Dosage: EVERY 28 DAYS 1X A MONTH INJECTION IN BOTH HIPS
     Dates: start: 20121003, end: 20130407
  9. ALBUTEROL INHALER [Concomitant]
     Active Substance: ALBUTEROL
  10. AMBIEN [Concomitant]
     Active Substance: ZOLPIDEM TARTRATE

REACTIONS (7)
  - Diarrhoea [None]
  - Yellow skin [None]
  - Malaise [None]
  - Vomiting [None]
  - Headache [None]
  - Chills [None]
  - Abdominal pain upper [None]

NARRATIVE: CASE EVENT DATE: 20130402
